FAERS Safety Report 7751663-4 (Version None)
Quarter: 2011Q3

REPORT INFORMATION
  Report Type: 
  Country: None (occurrence: None)
  Receive Date: 20110914
  Receipt Date: 20110824
  Transmission Date: 20111222
  Serious: Yes (Hospitalization)
  Sender: FDA-Public Use
  Company Number: PHHY2011JP69800

PATIENT
  Sex: Female
  Weight: 52 kg

DRUGS (27)
  1. EXFORGE [Suspect]
     Dosage: 1 DF, DAILY
     Route: 048
     Dates: start: 20110616, end: 20110706
  2. JOSAMYCIN [Suspect]
     Dosage: 300 MG, UNK
     Route: 048
     Dates: start: 20100219, end: 20100221
  3. JOSAMYCIN [Suspect]
     Dosage: 200 MG, UNK
     Route: 048
     Dates: start: 20070216, end: 20070220
  4. JOSAMYCIN [Suspect]
     Dosage: 400 MG, UNK
     Route: 048
     Dates: start: 20080312, end: 20080315
  5. LEVOFLOXACIN [Concomitant]
     Indication: CELLULITIS
     Dosage: 500 MG, UNK
     Route: 048
     Dates: start: 20110420, end: 20110505
  6. JOSAMYCIN [Suspect]
     Dosage: 300 MG, UNK
     Route: 048
     Dates: start: 20110520, end: 20110522
  7. DRAMAMINE [Concomitant]
     Route: 048
  8. JOSAMYCIN [Suspect]
     Dosage: 400 MG, UNK
     Route: 048
     Dates: start: 20071225, end: 20071229
  9. MARZULENE [Suspect]
     Dosage: 1 G, UNK
     Route: 048
  10. MARZULENE [Suspect]
     Dosage: 1 G, UNK
     Route: 048
     Dates: start: 20110615
  11. HITOCOBAMIN [Concomitant]
     Route: 048
  12. JOSAMYCIN [Suspect]
     Indication: UPPER RESPIRATORY TRACT INFLAMMATION
     Dosage: 400 MG, UNK
     Route: 048
     Dates: start: 19990205, end: 19990207
  13. JOSAMYCIN [Suspect]
     Dosage: 100 MG, UNK
     Route: 048
     Dates: start: 20100224, end: 20100228
  14. ENTERONON R [Suspect]
     Dosage: 1 G, UNK
     Route: 048
     Dates: start: 20001114, end: 20001120
  15. ENTERONON R [Suspect]
     Dosage: 2 G, UNK
     Route: 048
     Dates: start: 20040205, end: 20040208
  16. JUVELA NICOTINATE [Concomitant]
     Route: 048
  17. DRAMAMINE [Concomitant]
     Route: 048
  18. MICARDIS [Concomitant]
     Route: 048
     Dates: start: 20110523
  19. EXFORGE [Suspect]
     Indication: HYPERTENSION
     Dosage: 1 DF, DAILY
     Route: 048
     Dates: start: 20110424, end: 20110523
  20. ENTERONON R [Suspect]
     Dosage: 3 G, UNK
     Route: 048
     Dates: start: 20040611, end: 20040613
  21. AMLODIPINE [Concomitant]
     Route: 048
  22. JOSAMYCIN [Suspect]
     Dosage: 400 MG, UNK
     Route: 048
     Dates: start: 20070210, end: 20070214
  23. JOSAMYCIN [Suspect]
     Dosage: 200 MG, UNK
     Route: 048
     Dates: start: 20070302, end: 20070308
  24. JOSAMYCIN [Suspect]
     Dosage: 300 MG, UNK
     Route: 048
     Dates: start: 20070507, end: 20070509
  25. ENTERONON R [Suspect]
     Dosage: 2 G, UNK
     Route: 048
     Dates: start: 20001205, end: 20001207
  26. ENTERONON R [Suspect]
     Dosage: 2 G, UNK
     Route: 048
     Dates: start: 20110615, end: 20110707
  27. AMLODIPINE [Concomitant]
     Dosage: 5 MG, UNK
     Route: 048
     Dates: end: 20110615

REACTIONS (9)
  - UPPER RESPIRATORY TRACT INFLAMMATION [None]
  - VASCULAR PURPURA [None]
  - WHITE BLOOD CELL COUNT DECREASED [None]
  - CHROMATURIA [None]
  - HAEMATOCHEZIA [None]
  - ALANINE AMINOTRANSFERASE INCREASED [None]
  - ASPARTATE AMINOTRANSFERASE INCREASED [None]
  - HEPATITIS [None]
  - RASH [None]
